FAERS Safety Report 4734556-6 (Version None)
Quarter: 2005Q3

REPORT INFORMATION
  Report Type: 
  Country: None (occurrence: None)
  Receive Date: 20050729
  Receipt Date: 20050718
  Transmission Date: 20060218
  Serious: Yes (Hospitalization, Other)
  Sender: FDA-Public Use
  Company Number: HQWYE259119JUL05

PATIENT
  Age: 32 Year
  Sex: Female
  Weight: 68.1 kg

DRUGS (1)
  1. ZOSYN [Suspect]
     Dosage: THREE DOSES, INTRAVENOUS
     Route: 042

REACTIONS (5)
  - FEELING HOT [None]
  - HYPOVENTILATION [None]
  - NAUSEA [None]
  - TACHYPNOEA [None]
  - VOMITING [None]
